FAERS Safety Report 8222094 (Version 2)
Quarter: 2014Q2

REPORT INFORMATION
  Report Type: Report from Study
  Country: US (occurrence: US)
  Receive Date: 20111102
  Receipt Date: 20140527
  Transmission Date: 20141212
  Serious: Yes (Hospitalization, Other)
  Sender: FDA-Public Use
  Company Number: US-BRISTOL-MYERS SQUIBB COMPANY-13448188

PATIENT
  Age: 23 Year
  Sex: Male

DRUGS (8)
  1. BELATACEPT [Suspect]
     Indication: RENAL TRANSPLANT
     Route: 042
     Dates: start: 20060503, end: 20060713
  2. CELLCEPT [Suspect]
     Dates: start: 20060503
  3. PREDNISONE [Suspect]
     Dates: start: 20060503
  4. THYMOGLOBULINE [Concomitant]
     Dates: start: 20060718, end: 20060727
  5. PROGRAF [Concomitant]
     Dates: start: 20060726
  6. METHYLPREDNISOLONE [Concomitant]
     Route: 042
     Dates: start: 20060717, end: 20060717
  7. SEPTRA [Concomitant]
     Dates: start: 20060503
  8. VALGANCICLOVIR [Concomitant]

REACTIONS (5)
  - Post transplant lymphoproliferative disorder [Not Recovered/Not Resolved]
  - Kidney transplant rejection [Unknown]
  - Neutropenia [Recovered/Resolved]
  - Renal haemorrhage [Recovered/Resolved]
  - BK virus infection [Unknown]
